FAERS Safety Report 6841798-2 (Version None)
Quarter: 2010Q3

REPORT INFORMATION
  Report Type: 
  Country: None (occurrence: None)
  Receive Date: 20100714
  Receipt Date: 20100706
  Transmission Date: 20110219
  Serious: Yes (Hospitalization, Other)
  Sender: FDA-Public Use
  Company Number: US-MERCK-1007USA00659

PATIENT
  Age: 50 Year
  Sex: Male
  Weight: 80 kg

DRUGS (13)
  1. PRINIVIL [Suspect]
     Indication: HYPERTENSION
     Route: 048
     Dates: start: 19900101, end: 20000101
  2. HYTRIN [Suspect]
     Indication: HYPERTENSION
     Route: 048
     Dates: start: 19900101, end: 20000101
  3. HYTRIN [Suspect]
     Route: 048
     Dates: start: 20000101, end: 20040101
  4. CARTIA XT [Suspect]
     Indication: HYPERTENSION
     Route: 065
     Dates: start: 19900101, end: 20000101
  5. CARTIA XT [Suspect]
     Route: 065
     Dates: start: 20000101
  6. MORPHINE SULFATE [Concomitant]
     Indication: BACK PAIN
     Route: 048
     Dates: start: 19900101
  7. MORPHINE SULFATE [Concomitant]
     Route: 048
  8. MORPHINE SULFATE [Concomitant]
     Indication: BREAKTHROUGH PAIN
     Route: 048
     Dates: start: 19900101
  9. MORPHINE SULFATE [Concomitant]
     Route: 048
  10. ALPRAZOLAM [Concomitant]
     Indication: ANXIETY
     Route: 065
  11. CYCLOBENZAPRINE HYDROCHLORIDE [Concomitant]
     Indication: MUSCLE SPASMS
     Route: 065
  12. AMITRIPTYLINE HYDROCHLORIDE [Concomitant]
     Indication: NEURALGIA
     Route: 065
  13. AXOTAL [Concomitant]
     Indication: MIGRAINE
     Route: 065

REACTIONS (6)
  - HEPATIC ENZYME INCREASED [None]
  - LOSS OF CONSCIOUSNESS [None]
  - MENISCUS LESION [None]
  - OSTEOARTHRITIS [None]
  - PANCREATITIS [None]
  - POLYARTHRITIS [None]
